FAERS Safety Report 9003332 (Version 6)
Quarter: 2016Q4

REPORT INFORMATION
  Report Type: Spontaneous
  Country: US (occurrence: US)
  Receive Date: 20130108
  Receipt Date: 20161026
  Transmission Date: 20170207
  Serious: Yes (Hospitalization, Disabling, Other)
  Sender: FDA-Public Use
  Company Number: US-009507513-1301USA001502

PATIENT
  Sex: Female
  Weight: 70.75 kg

DRUGS (10)
  1. ALENDRONATE SODIUM. [Suspect]
     Active Substance: ALENDRONATE SODIUM
     Indication: OSTEOPENIA
     Dosage: 70 MG, QW
     Route: 048
     Dates: start: 2002, end: 2011
  2. IMMUNOTHERAPY (UNSPECIFIED) [Concomitant]
     Dosage: UNK
     Dates: start: 1989, end: 2011
  3. CENTRUM (MINERALS (UNSPECIFIED) (+) VITAMINS (UNSPECIFIED)) [Concomitant]
  4. FOSAMAX [Suspect]
     Active Substance: ALENDRONATE SODIUM
     Dosage: 70 MG, UNK
     Route: 048
     Dates: start: 20110217, end: 20111001
  5. VITAMIN E [Concomitant]
     Active Substance: .ALPHA.-TOCOPHEROL
  6. VITAMINS (UNSPECIFIED) [Concomitant]
     Active Substance: VITAMINS
  7. ALENDRONATE SODIUM. [Suspect]
     Active Substance: ALENDRONATE SODIUM
     Indication: OSTEOPOROSIS PROPHYLAXIS
     Dosage: 70 MG, UNKNOWN
     Route: 048
     Dates: start: 20080319, end: 201110
  8. CALCIUM (UNSPECIFIED) [Concomitant]
     Active Substance: CALCIUM
  9. VITAMIN D [Concomitant]
     Active Substance: CHOLECALCIFEROL
  10. FOSAMAX [Suspect]
     Active Substance: ALENDRONATE SODIUM
     Indication: OSTEOPOROSIS PROPHYLAXIS
     Dosage: 70 MG, QW
     Route: 048
     Dates: start: 2003, end: 20110127

REACTIONS (33)
  - Papilloma excision [Unknown]
  - Cardiac stress test abnormal [Unknown]
  - Osteoporosis [Not Recovered/Not Resolved]
  - Hypercholesterolaemia [Unknown]
  - Tooth fracture [Unknown]
  - Breast cyst excision [Unknown]
  - Contusion [Unknown]
  - Myalgia [Unknown]
  - Hysterectomy [Unknown]
  - Stress fracture [Unknown]
  - Femur fracture [Not Recovered/Not Resolved]
  - Tinea infection [Unknown]
  - Tricuspid valve incompetence [Unknown]
  - Aortic valve incompetence [Unknown]
  - Low turnover osteopathy [Not Recovered/Not Resolved]
  - Femur fracture [Not Recovered/Not Resolved]
  - Endodontic procedure [Unknown]
  - Appendicectomy [Unknown]
  - Iron deficiency anaemia [Recovering/Resolving]
  - Intramedullary rod insertion [Unknown]
  - Tooth extraction [Unknown]
  - Insomnia [Unknown]
  - Femur fracture [Unknown]
  - Hypertension [Unknown]
  - Atrial fibrillation [Unknown]
  - Osteoarthritis [Unknown]
  - Stress fracture [Not Recovered/Not Resolved]
  - Hypersensitivity [Unknown]
  - Arthritis [Unknown]
  - Pulse abnormal [Unknown]
  - Cerumen impaction [Unknown]
  - Myocardial ischaemia [Unknown]
  - Mitral valve incompetence [Unknown]

NARRATIVE: CASE EVENT DATE: 2007
